FAERS Safety Report 6043742-7 (Version None)
Quarter: 2009Q1

REPORT INFORMATION
  Report Type: 
  Country: None (occurrence: None)
  Receive Date: 20090120
  Receipt Date: 20090108
  Transmission Date: 20090719
  Serious: Yes (Other)
  Sender: FDA-Public Use
  Company Number: PHEH2009US00573

PATIENT
  Sex: Female
  Weight: 51.701 kg

DRUGS (13)
  1. RECLAST [Suspect]
     Dosage: 5 MG ONCE
     Route: 042
     Dates: start: 20081229
  2. DIGITEK [Concomitant]
  3. SANDOSTATIN [Concomitant]
  4. COUMADIN [Concomitant]
  5. ISOSORBIDE DINITRATE [Concomitant]
  6. PROZAC [Concomitant]
  7. LISINOPRIL [Concomitant]
  8. GLUCOPHAGE [Concomitant]
  9. TOPROL-XL [Concomitant]
  10. GLIMEPIRIDE [Concomitant]
  11. NITROGLYCERIN [Concomitant]
  12. CALCIUM [Concomitant]
  13. VITAMIN D [Concomitant]

REACTIONS (1)
  - INTERNATIONAL NORMALISED RATIO INCREASED [None]
